FAERS Safety Report 8172868-7 (Version None)
Quarter: 2012Q1

REPORT INFORMATION
  Report Type: 
  Country: None (occurrence: None)
  Receive Date: 20120229
  Receipt Date: 20120229
  Transmission Date: 20120608
  Serious: No
  Sender: FDA-Public Use
  Company Number: None

PATIENT
  Sex: Female
  Weight: 102.05 kg

DRUGS (9)
  1. AGESTIN [Concomitant]
  2. VALIUM [Concomitant]
  3. LYRICA [Suspect]
     Indication: FRONTAL LOBE EPILEPSY
     Dosage: 75MG
     Route: 048
  4. IBUPROFEN (ADVIL) [Concomitant]
  5. ATIVAN [Concomitant]
  6. VALERIAN ROOT [Concomitant]
  7. MELATONIN [Concomitant]
  8. SYNTHROID [Concomitant]
  9. ZANAFLEX [Concomitant]

REACTIONS (2)
  - LOSS OF CONSCIOUSNESS [None]
  - CONVULSION [None]
